FAERS Safety Report 18571634 (Version 1)
Quarter: 2020Q4

REPORT INFORMATION
  Report Type: Spontaneous
  Country: IT (occurrence: IT)
  Receive Date: 20201202
  Receipt Date: 20201202
  Transmission Date: 20210114
  Serious: Yes (Life-Threatening, Hospitalization)
  Sender: FDA-Public Use
  Company Number: IT-MYLANLABS-2020M1098909

PATIENT
  Age: 60 Year
  Sex: Female

DRUGS (1)
  1. CAPECITABINE. [Suspect]
     Active Substance: CAPECITABINE
     Indication: BREAST CANCER METASTATIC
     Dosage: ADMINISTERED EVERY 3 WEEKS ON DAYS 1-14
     Route: 065
     Dates: start: 201710

REACTIONS (6)
  - Neutropenia [Recovered/Resolved]
  - Diarrhoea [Unknown]
  - Asthenia [Unknown]
  - Mucosal inflammation [Unknown]
  - Posterior reversible encephalopathy syndrome [Recovered/Resolved]
  - Vomiting [Unknown]
